FAERS Safety Report 9894510 (Version 1)
Quarter: 2014Q1

REPORT INFORMATION
  Report Type: Report from Study
  Country: BR (occurrence: BR)
  Receive Date: 20140213
  Receipt Date: 20140213
  Transmission Date: 20141002
  Serious: Yes (Other)
  Sender: FDA-Public Use
  Company Number: PHHY2014BR017856

PATIENT
  Sex: Female
  Weight: 54 kg

DRUGS (2)
  1. ACLASTA [Suspect]
     Indication: OSTEOPOROSIS
     Dosage: 5 MG, UNK
     Route: 042
     Dates: start: 2011
  2. CALCIUM D3 SANDOZ [Suspect]
     Indication: OSTEOPOROSIS
     Dosage: 600 MG, UNK
     Dates: start: 2010

REACTIONS (2)
  - Gastric disorder [Recovered/Resolved]
  - Eating disorder [Recovered/Resolved]
